FAERS Safety Report 11588382 (Version 1)
Quarter: 2015Q4

REPORT INFORMATION
  Report Type: Spontaneous
  Country: US (occurrence: US)
  Receive Date: 20151002
  Receipt Date: 20151002
  Transmission Date: 20160304
  Serious: Yes (Other)
  Sender: FDA-Public Use
  Company Number: US-ACCORD-033413

PATIENT
  Age: 87 Year
  Sex: Female
  Weight: 70.46 kg

DRUGS (4)
  1. ERGOCALCIFEROL. [Concomitant]
     Active Substance: ERGOCALCIFEROL
     Indication: ANXIETY
     Route: 048
  2. TENORMIN [Concomitant]
     Active Substance: ATENOLOL
     Dosage: STRENGTH: 25 MG
  3. ATIVAN [Concomitant]
     Active Substance: LORAZEPAM
  4. ESCITALOPRAM [Suspect]
     Active Substance: ESCITALOPRAM OXALATE
     Indication: ANXIETY
     Route: 048
     Dates: start: 20150826, end: 20150827

REACTIONS (18)
  - Dizziness [Recovered/Resolved]
  - Headache [Recovered/Resolved]
  - Malaise [Recovered/Resolved]
  - Frustration [Unknown]
  - Swollen tongue [Recovered/Resolved]
  - Feeling cold [Unknown]
  - Swelling face [Recovered/Resolved]
  - Confusional state [Unknown]
  - Suicidal ideation [Not Recovered/Not Resolved]
  - Dyspnoea [Recovered/Resolved]
  - Nausea [Recovered/Resolved]
  - Lip swelling [Not Recovered/Not Resolved]
  - Mouth swelling [Not Recovered/Not Resolved]
  - Decreased appetite [Not Recovered/Not Resolved]
  - Dry mouth [Recovered/Resolved]
  - Burning sensation [Not Recovered/Not Resolved]
  - Vomiting [Recovered/Resolved]
  - Joint stiffness [Recovered/Resolved]

NARRATIVE: CASE EVENT DATE: 20150826
